FAERS Safety Report 10217630 (Version 1)
Quarter: 2014Q2

REPORT INFORMATION
  Report Type: Report from Study
  Country: US (occurrence: US)
  Receive Date: 20140604
  Receipt Date: 20140604
  Transmission Date: 20141212
  Serious: Yes (Hospitalization)
  Sender: FDA-Public Use
  Company Number: PHEH2014US011182

PATIENT
  Age: 48 Year
  Sex: Male

DRUGS (1)
  1. CLOZARIL [Suspect]
     Dosage: UNK

REACTIONS (4)
  - White blood cell count increased [Unknown]
  - Neutrophil count increased [Unknown]
  - Convulsion [Unknown]
  - Alcohol withdrawal syndrome [Unknown]
